FAERS Safety Report 6910853-0 (Version None)
Quarter: 2010Q3

REPORT INFORMATION
  Report Type: 
  Country: None (occurrence: None)
  Receive Date: 20100806
  Receipt Date: 20100726
  Transmission Date: 20110219
  Serious: Yes (Hospitalization)
  Sender: FDA-Public Use
  Company Number: NZ-SANOFI-AVENTIS-2010SA042351

PATIENT
  Age: 8 Year
  Sex: Female

DRUGS (2)
  1. CLIKSTAR [Suspect]
  2. LANTUS [Suspect]

REACTIONS (1)
  - DIABETIC KETOACIDOSIS [None]
